FAERS Safety Report 6927806-9 (Version None)
Quarter: 2010Q3

REPORT INFORMATION
  Report Type: 
  Country: None (occurrence: None)
  Receive Date: 20100817
  Receipt Date: 20100805
  Transmission Date: 20110219
  Serious: Yes (Death, Hospitalization)
  Sender: FDA-Public Use
  Company Number: FR-PFIZER INC-2010099075

PATIENT
  Age: 58 Year
  Sex: Male

DRUGS (7)
  1. TRIFLUCAN [Suspect]
     Dosage: UNK
     Dates: start: 20100401, end: 20100419
  2. PARACETAMOL [Suspect]
     Dosage: UNK
     Route: 041
     Dates: start: 20100401, end: 20100419
  3. PARACETAMOL [Suspect]
     Dosage: UNK
     Route: 041
     Dates: start: 20100427
  4. PRIMPERAN TAB [Suspect]
     Dosage: UNK
     Dates: start: 20100401, end: 20100419
  5. COLCHICINE OPALCIUM [Suspect]
     Dosage: UNK
     Route: 048
     Dates: start: 20100401, end: 20100410
  6. ZELITREX [Suspect]
     Indication: HERPES SIMPLEX SEROLOGY POSITIVE
     Dosage: UNK
     Dates: start: 20100409, end: 20100419
  7. OFLOCET [Suspect]
     Indication: HAEMOPHILUS INFECTION
     Dosage: UNK
     Dates: start: 20100414, end: 20100419

REACTIONS (1)
  - BONE MARROW FAILURE [None]
